FAERS Safety Report 18916529 (Version 1)
Quarter: 2021Q1

REPORT INFORMATION
  Report Type: Spontaneous
  Country: US (occurrence: US)
  Receive Date: 20210219
  Receipt Date: 20210219
  Transmission Date: 20210420
  Serious: No
  Sender: FDA-Public Use
  Company Number: None

PATIENT
  Age: 50 Year
  Sex: Female
  Weight: 65.25 kg

DRUGS (3)
  1. VITAMIN C [Concomitant]
     Active Substance: ASCORBIC ACID
  2. PROGESTERONE. [Concomitant]
     Active Substance: PROGESTERONE
  3. LYLLANA [Suspect]
     Active Substance: ESTRADIOL
     Indication: MENOPAUSE
     Dosage: ?          QUANTITY:1 PATCH(ES);OTHER FREQUENCY:SUNDAY AND WEDNESD;?
     Route: 062
     Dates: start: 20210214, end: 20210217

REACTIONS (6)
  - Dry eye [None]
  - Product adhesion issue [None]
  - Rhinorrhoea [None]
  - Flatulence [None]
  - Rash [None]
  - Abdominal distension [None]

NARRATIVE: CASE EVENT DATE: 20210214
